FAERS Safety Report 10186078 (Version 1)
Quarter: 2014Q2

REPORT INFORMATION
  Report Type: Spontaneous
  Country: US (occurrence: US)
  Receive Date: 20140521
  Receipt Date: 20140521
  Transmission Date: 20141212
  Serious: Yes (Death)
  Sender: FDA-Public Use
  Company Number: CHPA2014US006699

PATIENT
  Age: 86 Year
  Sex: Male

DRUGS (6)
  1. VOLTAREN GEL [Suspect]
     Indication: INFLAMMATION
     Route: 065
  2. VOLTAREN GEL [Suspect]
     Indication: OFF LABEL USE
  3. MS CONTIN [Concomitant]
     Indication: PAIN
     Route: 065
  4. LIDODERM [Concomitant]
     Indication: PAIN
     Route: 065
  5. FENTORA [Concomitant]
     Indication: BACK PAIN
     Route: 002
  6. SANCUSO [Concomitant]
     Indication: NAUSEA

REACTIONS (1)
  - Death [Fatal]
